FAERS Safety Report 7904399-0 (Version None)
Quarter: 2011Q4

REPORT INFORMATION
  Report Type: 
  Country: None (occurrence: None)
  Receive Date: 20111109
  Receipt Date: 20111101
  Transmission Date: 20120403
  Serious: Yes (Hospitalization)
  Sender: FDA-Public Use
  Company Number: US-ABBOTT-11P-163-0870567-00

PATIENT
  Sex: Male

DRUGS (6)
  1. PREVACID [Concomitant]
     Indication: GASTRIC DISORDER
     Route: 048
  2. AVODART [Concomitant]
     Indication: PROSTATIC DISORDER
     Route: 048
  3. GLIMEPIRIDE [Concomitant]
     Indication: GLUCOSE TOLERANCE IMPAIRED
     Route: 048
  4. NIASPAN [Suspect]
     Indication: HIGH DENSITY LIPOPROTEIN DECREASED
     Dosage: AT 8PM
     Route: 048
     Dates: start: 20070501, end: 20111027
  5. NIASPAN [Suspect]
     Dosage: AT 8PM
     Route: 048
     Dates: start: 20111028
  6. ASPIRIN [Concomitant]
     Indication: PRODUCT USED FOR UNKNOWN INDICATION
     Route: 048

REACTIONS (7)
  - FLUSHING [None]
  - BLOOD TEST ABNORMAL [None]
  - GENERALISED ERYTHEMA [None]
  - ASTHENIA [None]
  - GASTRIC ULCER HAEMORRHAGE [None]
  - FEELING HOT [None]
  - HIGH DENSITY LIPOPROTEIN DECREASED [None]
